FAERS Safety Report 7929740-4 (Version None)
Quarter: 2011Q4

REPORT INFORMATION
  Report Type: 
  Country: None (occurrence: None)
  Receive Date: 20111121
  Receipt Date: 20111114
  Transmission Date: 20120403
  Serious: Yes (Other)
  Sender: FDA-Public Use
  Company Number: PHEH2011US009643

PATIENT
  Sex: Female
  Weight: 57.143 kg

DRUGS (1)
  1. TOBI [Suspect]
     Indication: CYSTIC FIBROSIS
     Dosage: 300 MG, BID,IN A CYCLE OF 30 DAYS ON AND 30 DAYS OFF
     Dates: start: 20110730

REACTIONS (5)
  - EAR PAIN [None]
  - BRONCHIECTASIS [None]
  - PULMONARY HAEMORRHAGE [None]
  - HAEMOPTYSIS [None]
  - TINNITUS [None]
